FAERS Safety Report 8139058-5 (Version None)
Quarter: 2012Q1

REPORT INFORMATION
  Report Type: 
  Country: None (occurrence: None)
  Receive Date: 20120215
  Receipt Date: 20120209
  Transmission Date: 20120608
  Serious: Yes (Death)
  Sender: FDA-Public Use
  Company Number: US-PFIZER INC-2012036881

PATIENT
  Sex: Female

DRUGS (1)
  1. VFEND [Suspect]
     Indication: BREAST DISORDER
     Dosage: 200 MG, 2X/DAY
     Dates: start: 20120104

REACTIONS (1)
  - DEATH [None]
